FAERS Safety Report 25363667 (Version 1)
Quarter: 2025Q2

REPORT INFORMATION
  Report Type: Spontaneous
  Country: US (occurrence: None)
  Receive Date: 20250527
  Receipt Date: 20250527
  Transmission Date: 20250716
  Serious: No
  Sender: FDA-CTU
  Company Number: None

PATIENT
  Age: 64 Year
  Sex: Female
  Weight: 70.2 kg

DRUGS (12)
  1. MINOCYCLINE HYDROCHLORIDE [Suspect]
     Active Substance: MINOCYCLINE HYDROCHLORIDE
     Indication: Dermatitis
     Dosage: OTHER QUANTITY : 1 CAPSULE(S);?FREQUENCY : DAILY;?
     Route: 048
     Dates: start: 20250512, end: 20250525
  2. Atorvastatin Calcium 10 MG [Concomitant]
  3. Losartan Potassium/Hydrochlorothiazide 50-12.5MG [Concomitant]
  4. METFORMIN HYDROCHLORIDE [Concomitant]
     Active Substance: METFORMIN HYDROCHLORIDE
  5. Mounjaro 7.5 MG/0.5ML [Concomitant]
  6. Refill NP Thyroid 15 MG three tabs (30 mg) O on tue and fridays;2T [Concomitant]
  7. NP THYROID [Concomitant]
     Active Substance: LEVOTHYROXINE\LIOTHYRONINE
  8. Nebivolol HCL 20 MG [Concomitant]
  9. ALLEGRA ALLERGY [Concomitant]
     Active Substance: FEXOFENADINE HYDROCHLORIDE
  10. ADVIL [Concomitant]
     Active Substance: IBUPROFEN
  11. TYLENOL [Concomitant]
     Active Substance: ACETAMINOPHEN
  12. ZYRTEC [Concomitant]
     Active Substance: CETIRIZINE HYDROCHLORIDE

REACTIONS (8)
  - Chills [None]
  - Malaise [None]
  - Pyrexia [None]
  - Vomiting [None]
  - Headache [None]
  - Fatigue [None]
  - Gingival swelling [None]
  - Gingival pain [None]

NARRATIVE: CASE EVENT DATE: 20250524
